FAERS Safety Report 8959689 (Version 2)
Quarter: 2012Q4

REPORT INFORMATION
  Report Type: 
  Country: CL (occurrence: CL)
  Receive Date: 20121212
  Receipt Date: 20121220
  Transmission Date: 20130627
  Serious: Yes (Other)
  Sender: FDA-Public Use
  Company Number: CL-RANBAXY-2012RR-62922

PATIENT
  Age: 57 Year
  Sex: Female

DRUGS (4)
  1. ARIPIPRAZOLE [Suspect]
     Indication: TRICHOTILLOMANIA
     Dosage: 5 mg, UNK
     Route: 065
  2. FLUOXETINE [Interacting]
     Indication: TRICHOTILLOMANIA
     Dosage: 20 mg, UNK
     Route: 065
  3. TRIHEXYPHENIDYL [Suspect]
     Indication: EXTRAPYRAMIDAL DISORDER
     Dosage: UNK
     Route: 065
  4. PRIMIDONE [Suspect]
     Indication: EXTRAPYRAMIDAL DISORDER
     Route: 065

REACTIONS (3)
  - Extrapyramidal disorder [Recovered/Resolved]
  - Memory impairment [Recovered/Resolved]
  - Drug interaction [Recovered/Resolved]
